FAERS Safety Report 6874024-9 (Version None)
Quarter: 2010Q3

REPORT INFORMATION
  Report Type: 
  Country: None (occurrence: None)
  Receive Date: 20100721
  Receipt Date: 20100623
  Transmission Date: 20110219
  Serious: No
  Sender: FDA-Public Use
  Company Number: JPI-P-011097

PATIENT
  Age: 56 Year
  Sex: Female

DRUGS (1)
  1. XYREM [Suspect]
     Indication: PRODUCT USED FOR UNKNOWN INDICATION
     Dosage: 3 GM (1.5 GM,2 IN 1 D),ORAL ; 6 GM (3 GM,2 IN 1D),ORA
     Route: 048
     Dates: start: 20040528

REACTIONS (1)
  - SPINAL OSTEOARTHRITIS [None]
